FAERS Safety Report 25270782 (Version 1)
Quarter: 2025Q2

REPORT INFORMATION
  Report Type: Report from Study
  Country: GT (occurrence: GT)
  Receive Date: 20250505
  Receipt Date: 20250505
  Transmission Date: 20250716
  Serious: Yes (Other)
  Sender: ALEXION PHARMACEUTICALS
  Company Number: GT-AstraZeneca-CH-00859527A

PATIENT

DRUGS (1)
  1. ANIFROLUMAB [Suspect]
     Active Substance: ANIFROLUMAB
     Indication: Antiphospholipid antibodies
     Dosage: 300 MILLIGRAM, Q4W

REACTIONS (2)
  - Hypersensitivity [Recovered/Resolved with Sequelae]
  - Dry skin [Unknown]
